FAERS Safety Report 10033642 (Version 1)
Quarter: 2014Q1

REPORT INFORMATION
  Report Type: Spontaneous
  Country: US (occurrence: US)
  Receive Date: 20140325
  Receipt Date: 20140325
  Transmission Date: 20141002
  Serious: No
  Sender: FDA-Public Use
  Company Number: US-BIOGENIDEC-2014BI023542

PATIENT
  Sex: Female

DRUGS (15)
  1. TECFIDERA [Suspect]
     Indication: MULTIPLE SCLEROSIS
     Route: 048
  2. SIMVASTATIN [Concomitant]
  3. LISINOPRIL [Concomitant]
  4. COD LIVER OIL [Concomitant]
  5. EVENING PRIMROSE OIL [Concomitant]
  6. CRANBERRY [Concomitant]
  7. CALCIUM 600 + D3 [Concomitant]
  8. FLAX SEED OIL [Concomitant]
  9. CVS VITAMIN C [Concomitant]
  10. CVS VITAMIN E [Concomitant]
  11. CVS FISH OIL [Concomitant]
  12. CVS LUTEIN [Concomitant]
  13. CVS VITAMIN D [Concomitant]
  14. B COMPLEX [Concomitant]
  15. BABY ASPIRIN [Concomitant]

REACTIONS (3)
  - Nasopharyngitis [Unknown]
  - Influenza [Unknown]
  - Depression [Unknown]
